FAERS Safety Report 8761203 (Version 1)
Quarter: 2012Q4

REPORT INFORMATION
  Report Type: 
  Country: US (occurrence: US)
  Receive Date: 20120830
  Receipt Date: 20120830
  Transmission Date: 20130627
  Serious: No
  Sender: FDA-Public Use
  Company Number: US-BAYER-2012-082924

PATIENT
  Age: 47 Year
  Sex: Male

DRUGS (1)
  1. NAPROXEN\ORPHENADRINE [Suspect]
     Indication: ILL-DEFINED DISORDER
     Dosage: UNK
     Dates: start: 2012

REACTIONS (1)
  - Drug screen false positive [None]
